FAERS Safety Report 15482983 (Version 1)
Quarter: 2018Q4

REPORT INFORMATION
  Report Type: Spontaneous
  Country: US (occurrence: US)
  Receive Date: 20181010
  Receipt Date: 20181010
  Transmission Date: 20190205
  Serious: Yes (Death)
  Sender: FDA-Public Use
  Company Number: None

PATIENT
  Sex: Female

DRUGS (6)
  1. XARELTO [Concomitant]
     Active Substance: RIVAROXABAN
  2. PROBIOTIC [Concomitant]
     Active Substance: PROBIOTICS NOS
  3. MELATONIN [Concomitant]
     Active Substance: MELATONIN
  4. VOTRIENT [Suspect]
     Active Substance: PAZOPANIB HYDROCHLORIDE
     Indication: BONE CANCER
     Route: 048
  5. AZITHROMYCIN 250MG [Concomitant]
     Active Substance: AZITHROMYCIN ANHYDROUS
  6. CEFDINIR 300MG [Concomitant]
     Active Substance: CEFDINIR

REACTIONS (1)
  - Death [None]
